FAERS Safety Report 9206528 (Version 1)
Quarter: 2013Q2

REPORT INFORMATION
  Report Type: Spontaneous
  Country: DE (occurrence: DE)
  Receive Date: 20130403
  Receipt Date: 20130403
  Transmission Date: 20140414
  Serious: Yes (Congenital Anomaly)
  Sender: FDA-Public Use
  Company Number: DE-PFIZER INC-2013101713

PATIENT
  Sex: 0

DRUGS (1)
  1. TREVILOR RETARD [Suspect]
     Dosage: 75 MG, UNK
     Route: 064
     Dates: start: 2008, end: 2010

REACTIONS (2)
  - Maternal exposure during pregnancy [Unknown]
  - Trisomy 21 [Unknown]
